FAERS Safety Report 5836116-2 (Version None)
Quarter: 2008Q3

REPORT INFORMATION
  Report Type: 
  Country: None (occurrence: None)
  Receive Date: 20080805
  Receipt Date: 20080723
  Transmission Date: 20090109
  Serious: Yes (Hospitalization)
  Sender: FDA-Public Use
  Company Number: 08P-013-0465938-00

PATIENT
  Sex: Male

DRUGS (6)
  1. SYNAGIS [Suspect]
     Indication: ANTIVIRAL PROPHYLAXIS
     Dosage: (0.65 ML, 15MG/KG); (0.75 MG); (0.8 MG); (0.8 MG); (0.83 MG); (0.85 MG)
     Dates: start: 20061019, end: 20061019
  2. SYNAGIS [Suspect]
     Indication: ANTIVIRAL PROPHYLAXIS
     Dosage: (0.65 ML, 15MG/KG); (0.75 MG); (0.8 MG); (0.8 MG); (0.83 MG); (0.85 MG)
     Dates: start: 20061128, end: 20061128
  3. SYNAGIS [Suspect]
     Indication: ANTIVIRAL PROPHYLAXIS
     Dosage: (0.65 ML, 15MG/KG); (0.75 MG); (0.8 MG); (0.8 MG); (0.83 MG); (0.85 MG)
     Dates: start: 20061222, end: 20061222
  4. SYNAGIS [Suspect]
     Indication: ANTIVIRAL PROPHYLAXIS
     Dosage: (0.65 ML, 15MG/KG); (0.75 MG); (0.8 MG); (0.8 MG); (0.83 MG); (0.85 MG)
     Dates: start: 20061222, end: 20061222
  5. SYNAGIS [Suspect]
     Indication: ANTIVIRAL PROPHYLAXIS
     Dosage: (0.65 ML, 15MG/KG); (0.75 MG); (0.8 MG); (0.8 MG); (0.83 MG); (0.85 MG)
     Dates: start: 20070119, end: 20070119
  6. SYNAGIS [Suspect]
     Indication: ANTIVIRAL PROPHYLAXIS
     Dosage: (0.65 ML, 15MG/KG); (0.75 MG); (0.8 MG); (0.8 MG); (0.83 MG); (0.85 MG)
     Dates: start: 20070222, end: 20070222

REACTIONS (2)
  - DIET REFUSAL [None]
  - RESPIRATORY SYNCYTIAL VIRUS INFECTION [None]
